FAERS Safety Report 16806772 (Version 1)
Quarter: 2019Q3

REPORT INFORMATION
  Report Type: Spontaneous
  Country: US (occurrence: US)
  Receive Date: 20190724
  Receipt Date: 20190724
  Transmission Date: 20191005
  Serious: No
  Sender: FDA-Public Use
  Company Number: None

PATIENT
  Age: 55 Year
  Sex: Female

DRUGS (1)
  1. VERZENIO [Suspect]
     Active Substance: ABEMACICLIB
     Indication: BREAST CANCER
     Route: 048
     Dates: start: 201902

REACTIONS (4)
  - Erythema [None]
  - Swelling face [None]
  - Skin disorder [None]
  - Skin warm [None]

NARRATIVE: CASE EVENT DATE: 20190723
